FAERS Safety Report 19431527 (Version 2)
Quarter: 2022Q1

REPORT INFORMATION
  Report Type: Spontaneous
  Country: CA (occurrence: CA)
  Receive Date: 20210618
  Receipt Date: 20220327
  Transmission Date: 20220423
  Serious: Yes (Other)
  Sender: FDA-Public Use
  Company Number: CA-SAMSUNG BIOEPIS-SB-2021-14407

PATIENT
  Age: 35 Year
  Sex: Female

DRUGS (1)
  1. INFLIXIMAB [Suspect]
     Active Substance: INFLIXIMAB
     Indication: Colitis ulcerative
     Route: 042

REACTIONS (5)
  - Eczema [Recovered/Resolved]
  - Gait inability [Recovered/Resolved]
  - Joint injury [Recovered/Resolved]
  - Otitis externa [Recovered/Resolved]
  - Off label use [Recovered/Resolved]
